FAERS Safety Report 7732478-X (Version None)
Quarter: 2011Q3

REPORT INFORMATION
  Report Type: 
  Country: None (occurrence: None)
  Receive Date: 20110906
  Receipt Date: 20110826
  Transmission Date: 20111222
  Serious: Yes (Hospitalization)
  Sender: FDA-Public Use
  Company Number: US-ASTRAZENECA-2011SE47276

PATIENT
  Age: 78 Year
  Sex: Female

DRUGS (5)
  1. CALCIUM WITH VITAMIN [Suspect]
     Route: 065
  2. CALCIUM CARBONATE [Suspect]
     Route: 065
  3. NEXIUM [Suspect]
     Route: 048
  4. PRILOSEC OTC [Suspect]
     Route: 048
  5. RANITIDINE [Suspect]
     Route: 065

REACTIONS (4)
  - OSTEOPOROSIS [None]
  - DYSPEPSIA [None]
  - BONE DISORDER [None]
  - MEMORY IMPAIRMENT [None]
